FAERS Safety Report 20170464 (Version 1)
Quarter: 2021Q4

REPORT INFORMATION
  Report Type: Report from Study
  Country: None (occurrence: BR)
  Receive Date: 20211210
  Receipt Date: 20211210
  Transmission Date: 20220303
  Serious: Yes (Other)
  Sender: FDA-Public Use
  Company Number: BR-AKCEA THERAPEUTICS, INC.-2021IS001943

PATIENT
  Age: 73 Year
  Sex: Male
  Weight: 85.182 kg

DRUGS (8)
  1. TEGSEDI [Suspect]
     Active Substance: INOTERSEN SODIUM
     Indication: Hereditary neuropathic amyloidosis
     Route: 058
     Dates: start: 20151116
  2. DEVICE [Suspect]
     Active Substance: DEVICE
  3. RETINOL [Concomitant]
     Active Substance: RETINOL
     Route: 065
     Dates: start: 2015
  4. VITAMIN C [Concomitant]
     Active Substance: ASCORBIC ACID
     Route: 065
  5. HYLO GEL [Concomitant]
     Route: 065
  6. PURAN [Concomitant]
     Active Substance: LEVOTHYROXINE SODIUM
     Route: 065
  7. EUPROSTATIN [Concomitant]
     Route: 065
  8. ROSUVASTATIN CALCIUM [Concomitant]
     Active Substance: ROSUVASTATIN CALCIUM
     Route: 065

REACTIONS (2)
  - Chronic kidney disease [Not Recovered/Not Resolved]
  - Off label use [Not Recovered/Not Resolved]

NARRATIVE: CASE EVENT DATE: 20150101
